FAERS Safety Report 4730502-X (Version None)
Quarter: 2005Q3

REPORT INFORMATION
  Report Type: 
  Country: None (occurrence: None)
  Receive Date: 20050725
  Receipt Date: 20050215
  Transmission Date: 20060218
  Serious: No
  Sender: FDA-Public Use
  Company Number: USA050290933

PATIENT
  Age: 39 Year
  Sex: Male

DRUGS (3)
  1. STRATTERA [Suspect]
     Dosage: 80 MG DAY
     Dates: start: 20050201
  2. ACTOS [Concomitant]
  3. WELLBUTRIN [Concomitant]

REACTIONS (6)
  - DRUG INEFFECTIVE [None]
  - DYSURIA [None]
  - MICTURITION URGENCY [None]
  - NAUSEA [None]
  - NERVOUSNESS [None]
  - SOMNOLENCE [None]
